FAERS Safety Report 13497087 (Version 3)
Quarter: 2018Q1

REPORT INFORMATION
  Report Type: Spontaneous
  Country: US (occurrence: US)
  Receive Date: 20170428
  Receipt Date: 20180103
  Transmission Date: 20180508
  Serious: Yes (Hospitalization, Other)
  Sender: FDA-Public Use
  Company Number: US-009507513-1704USA011397

PATIENT
  Age: 49 Year
  Sex: Female

DRUGS (11)
  1. VANCOMYCIN [Suspect]
     Active Substance: VANCOMYCIN
     Indication: DEVICE RELATED INFECTION
     Dosage: EMPIRICALLY INCREASED FOR 2 DOSES TO 20 MG/KG (2G), EVERY 8H, ON HOSPITALIZATION DAY 2, 1ST AT 01:00
  2. VANCOMYCIN [Suspect]
     Active Substance: VANCOMYCIN
     Dosage: 10 MG/KG (1G), ON HOSPITALIZATION DAY 3 AT 01:00
  3. VANCOMYCIN [Suspect]
     Active Substance: VANCOMYCIN
     Dosage: DECREASED BACK TO 10 MG/KG (1G), EVERY 8H, ON HOSPITALIZATION DAY 2 AT 17:00
  4. PRINIVIL [Suspect]
     Active Substance: LISINOPRIL
     Dosage: UNK, ON HOSPITALIZATION DAY 1
     Route: 048
  5. VANCOMYCIN [Suspect]
     Active Substance: VANCOMYCIN
     Indication: STAPHYLOCOCCAL INFECTION
     Dosage: 10 MG/KG (1G), EVERY 8H, ON HOSPITALIZATION DAY 1 AT 20:38
  6. VANCOMYCIN [Suspect]
     Active Substance: VANCOMYCIN
     Dosage: EMPIRICALLY INCREASED FOR 2 DOSES TO 20 MG/KG (2G), EVERY 8H, ON HOSPITALIZATION DAY 2, 2ND AT 09:40
  7. VANCOMYCIN [Suspect]
     Active Substance: VANCOMYCIN
     Dosage: 10 MG/KG (1G), ON HOSPITALIZATION DAY 3 AT 10:05
  8. VANCOMYCIN [Suspect]
     Active Substance: VANCOMYCIN
     Dosage: 10 MG/KG (1G), ON HOSPITALIZATION DAY 3 AT 18:00
  9. PRINIVIL [Suspect]
     Active Substance: LISINOPRIL
     Dosage: UNK, ON HOSPITALIZATION DAY 3
     Route: 048
  10. VANCOMYCIN [Suspect]
     Active Substance: VANCOMYCIN
     Dosage: 10 MG/KG (1G), ON HOSPITALIZATION DAY 4 AT 01:00
  11. VANCOMYCIN [Suspect]
     Active Substance: VANCOMYCIN
     Dosage: 10 MG/KG (1G), ON HOSPITALIZATION DAY 4 AT 09:00

REACTIONS (3)
  - Nephropathy toxic [Recovered/Resolved]
  - Acute kidney injury [Recovered/Resolved]
  - Renal tubular necrosis [Recovered/Resolved]
